FAERS Safety Report 25958658 (Version 1)
Quarter: 2025Q4

REPORT INFORMATION
  Report Type: Spontaneous
  Country: US (occurrence: US)
  Receive Date: 20251024
  Receipt Date: 20251024
  Transmission Date: 20260118
  Serious: No
  Sender: TEIKOKU
  Company Number: US-TPU-TPU-2025-00486

PATIENT

DRUGS (7)
  1. LIDOCAINE PATCH [Suspect]
     Active Substance: LIDOCAINE
  2. LIDOCAINE PATCH [Suspect]
     Active Substance: LIDOCAINE
  3. LIDOCAINE PATCH [Suspect]
     Active Substance: LIDOCAINE
  4. LIDOCAINE PATCH [Suspect]
     Active Substance: LIDOCAINE
  5. LIDOCAINE PATCH [Suspect]
     Active Substance: LIDOCAINE
  6. LIDOCAINE PATCH [Suspect]
     Active Substance: LIDOCAINE
  7. LIDOCAINE PATCH [Suspect]
     Active Substance: LIDOCAINE

REACTIONS (1)
  - Wrong technique in product usage process [Unknown]
